FAERS Safety Report 23310836 (Version 1)
Quarter: 2023Q4

REPORT INFORMATION
  Report Type: Spontaneous
  Country: US (occurrence: US)
  Receive Date: 20231218
  Receipt Date: 20231218
  Transmission Date: 20240110
  Serious: Yes (Life-Threatening, Hospitalization, Other)
  Sender: FDA-Public Use
  Company Number: None

PATIENT
  Age: 9 Year
  Sex: Male

DRUGS (4)
  1. MYCOPHENOLATE MOFETIL [Suspect]
     Active Substance: MYCOPHENOLATE MOFETIL
     Indication: Nephrotic syndrome
     Dosage: 200 MILLIGRAM, BID, (EVERY 12 HOUR)
     Route: 065
     Dates: start: 201803
  2. PREDNISONE [Suspect]
     Active Substance: PREDNISONE
     Indication: Nephrotic syndrome
     Dosage: 30 MILLIGRAM, ALTERNATE DAYS FOR ABOUT 1 MONTH
     Route: 065
  3. PREDNISONE [Suspect]
     Active Substance: PREDNISONE
     Dosage: UNK (DURING DISCHARGE)
     Route: 065
  4. PREDNISONE [Suspect]
     Active Substance: PREDNISONE
     Dosage: 30 MILLIGRAM,  EVERY 2 DAY.
     Route: 065
     Dates: start: 201808

REACTIONS (1)
  - Meningitis pneumococcal [Recovering/Resolving]

NARRATIVE: CASE EVENT DATE: 20180901
